FAERS Safety Report 7640279-6 (Version None)
Quarter: 2011Q3

REPORT INFORMATION
  Report Type: 
  Country: None (occurrence: None)
  Receive Date: 20110728
  Receipt Date: 20110725
  Transmission Date: 20111222
  Serious: Yes (Other)
  Sender: FDA-Public Use
  Company Number: US-BAYER-2011-065234

PATIENT
  Age: 29 Year
  Sex: Female

DRUGS (3)
  1. DROSPIRENONE AND ETHINYL ESTRADIOL [Suspect]
     Dosage: UNK
     Dates: start: 20080730, end: 20090612
  2. YASMIN [Suspect]
     Dosage: UNK
     Dates: start: 20071201, end: 20080730
  3. YASMIN [Suspect]
     Dosage: UNK
     Dates: start: 20040501, end: 20050801

REACTIONS (2)
  - INJURY [None]
  - DEEP VEIN THROMBOSIS [None]
